FAERS Safety Report 4988604-9 (Version None)
Quarter: 2006Q2

REPORT INFORMATION
  Report Type: 
  Country: None (occurrence: None)
  Receive Date: 20060426
  Receipt Date: 20060405
  Transmission Date: 20061013
  Serious: Yes (Hospitalization)
  Sender: FDA-Public Use
  Company Number: KR200603001474

PATIENT
  Age: 49 Year
  Sex: Female
  Weight: 47 kg

DRUGS (4)
  1. GEMCITABINE HYDROCHLORIDE (GEMCITABINE HYDROCHLORIDE) VIAL [Suspect]
     Indication: BREAST CANCER
     Dosage: 1400 MG, OTHER, INTRAVENOUS
     Route: 042
     Dates: start: 20050126, end: 20050407
  2. CISPLATIN [Suspect]
     Indication: BREAST CANCER
     Dosage: 80 MG, OTHER, INTRAVENOUS
     Route: 042
     Dates: start: 20050126, end: 20050407
  3. THERAPEUTIC RADIOPHARMACEUTICALS [Concomitant]
  4. DEXAMETHASONE [Concomitant]

REACTIONS (4)
  - GENERAL PHYSICAL CONDITION ABNORMAL [None]
  - KARNOFSKY SCALE WORSENED [None]
  - NEUTROPENIA [None]
  - PNEUMONIA [None]
